FAERS Safety Report 5393810-8 (Version None)
Quarter: 2007Q3

REPORT INFORMATION
  Report Type: 
  Country: None (occurrence: None)
  Receive Date: 20070720
  Receipt Date: 20070720
  Transmission Date: 20080115
  Serious: Yes (Hospitalization)
  Sender: FDA-Public Use
  Company Number: None

PATIENT
  Sex: Male
  Weight: 91.3 kg

DRUGS (2)
  1. BEVACIZUMAB, 25MG/ML/GENENTECH [Suspect]
     Indication: TONGUE NEOPLASM MALIGNANT STAGE UNSPECIFIED
     Dosage: 5MG/KG Q 3 WEEKS IV
     Route: 042
     Dates: start: 20070530, end: 20070711
  2. CISPLATIN [Suspect]
     Dosage: 20MG/M2 Q WEEKLY IV
     Route: 042
     Dates: start: 20070509, end: 20070711

REACTIONS (5)
  - FEEDING DISORDER [None]
  - NAUSEA [None]
  - ORAL INTAKE REDUCED [None]
  - VOMITING [None]
  - WEIGHT DECREASED [None]
